FAERS Safety Report 23707790 (Version 1)
Quarter: 2024Q2

REPORT INFORMATION
  Report Type: Spontaneous
  Country: US (occurrence: None)
  Receive Date: 20240404
  Receipt Date: 20240404
  Transmission Date: 20240716
  Serious: No
  Sender: FDA-Public Use
  Company Number: None

PATIENT
  Age: 75 Year
  Sex: Male

DRUGS (1)
  1. LENALIDOMIDE [Suspect]
     Active Substance: LENALIDOMIDE
     Indication: Follicular lymphoma stage I
     Dosage: 20MG QD ORAL
     Route: 048
     Dates: start: 20231218

REACTIONS (5)
  - Dry skin [None]
  - Erythema [None]
  - Skin warm [None]
  - Skin exfoliation [None]
  - Rash [None]

NARRATIVE: CASE EVENT DATE: 20240208
